FAERS Safety Report 8058176-3 (Version None)
Quarter: 2012Q1

REPORT INFORMATION
  Report Type: 
  Country: None (occurrence: None)
  Receive Date: 20120112
  Receipt Date: 20120104
  Transmission Date: 20120608
  Serious: Yes (Other)
  Sender: FDA-Public Use
  Company Number: DSA_48234_2011

PATIENT
  Sex: Female

DRUGS (15)
  1. PRINIVIL [Concomitant]
  2. XENAZINE [Suspect]
     Indication: HUNTINGTON'S DISEASE
     Dosage: 12.5 MG QD ORAL
     Route: 048
     Dates: start: 20110511, end: 20111031
  3. PAXIL [Concomitant]
  4. PHARMACIST FAVORITE MULTI-VIT TAB [Concomitant]
  5. METOPROLOL TARTRATE [Concomitant]
  6. OMEPRAZOLE [Concomitant]
  7. ERGOCALCIFEROL [Concomitant]
  8. MOTILIUM [Concomitant]
  9. CYANOCOBALAMIN [Concomitant]
  10. GLUCOPHAGE [Concomitant]
  11. FUROSEMIDE [Concomitant]
  12. COZAAR [Concomitant]
  13. ESTRADIOL [Concomitant]
  14. WARFARIN SODIUM [Concomitant]
  15. CARTIA XT [Concomitant]

REACTIONS (4)
  - NORMAL PRESSURE HYDROCEPHALUS [None]
  - PARKINSON'S DISEASE [None]
  - BALANCE DISORDER [None]
  - FALL [None]
